FAERS Safety Report 8835072 (Version 1)
Quarter: 2012Q4

REPORT INFORMATION
  Report Type: 
  Country: SE (occurrence: SE)
  Receive Date: 20121011
  Receipt Date: 20121011
  Transmission Date: 20130627
  Serious: Yes (Death, Life-Threatening, Hospitalization)
  Sender: FDA-Public Use
  Company Number: SE-JNJFOC-20121002571

PATIENT
  Age: 53 Year
  Sex: Male

DRUGS (6)
  1. SIMPONI [Suspect]
     Indication: RHEUMATOID ARTHRITIS
     Route: 058
     Dates: start: 20120509, end: 20120802
  2. NASONEX [Concomitant]
     Route: 065
  3. BRICANYL [Concomitant]
     Route: 065
  4. RHINOCORT AQUA [Concomitant]
     Route: 065
  5. FUROSEMIDE [Concomitant]
     Route: 065
  6. ATENOLOL [Concomitant]
     Route: 065

REACTIONS (2)
  - Acute respiratory distress syndrome [Fatal]
  - Pneumonia [Fatal]
